FAERS Safety Report 4845933-7 (Version None)
Quarter: 2005Q4

REPORT INFORMATION
  Report Type: 
  Country: None (occurrence: None)
  Receive Date: 20051201
  Receipt Date: 20051115
  Transmission Date: 20060501
  Serious: Yes (Disabling)
  Sender: FDA-Public Use
  Company Number: 230056M05FRA

PATIENT
  Sex: Female
  Weight: 52 kg

DRUGS (1)
  1. REBIF [Suspect]
     Indication: MULTIPLE SCLEROSIS
     Dosage: SEE IMAGE
     Dates: start: 20030801, end: 20051006

REACTIONS (7)
  - ABASIA [None]
  - GAIT DISTURBANCE [None]
  - IMPAIRED WORK ABILITY [None]
  - INJECTION SITE CELLULITIS [None]
  - MEDICAL DEVICE PAIN [None]
  - PAIN IN EXTREMITY [None]
  - WRONG TECHNIQUE IN DRUG USAGE PROCESS [None]
